FAERS Safety Report 23462633 (Version 1)
Quarter: 2024Q1

REPORT INFORMATION
  Report Type: Spontaneous
  Country: US (occurrence: None)
  Receive Date: 20240131
  Receipt Date: 20240131
  Transmission Date: 20240410
  Serious: Yes (Death)
  Sender: FDA-Public Use
  Company Number: None

PATIENT
  Sex: Male

DRUGS (9)
  1. ERBITUX [Suspect]
     Active Substance: CETUXIMAB
     Indication: Rectal cancer
     Dosage: OTHER FREQUENCY : 1 DAY;?
     Route: 042
     Dates: start: 202311
  2. LEUCOVORIN CALCIUM [Suspect]
     Active Substance: LEUCOVORIN CALCIUM
     Indication: Rectal cancer
     Dosage: OTHER FREQUENCY : DAYS 1 Y 15;?
     Route: 042
     Dates: start: 202311
  3. CAMPTOSAR [Concomitant]
     Active Substance: IRINOTECAN HYDROCHLORIDE
  4. DEXAMETHASONE [Concomitant]
  5. IRINOTECAN [Concomitant]
     Active Substance: IRINOTECAN
  6. DIPHENHYDRAMINE [Concomitant]
  7. ERBITUX [Concomitant]
     Active Substance: CETUXIMAB
  8. ONDANSETRON HYDROCHLORIDE [Concomitant]
     Active Substance: ONDANSETRON HYDROCHLORIDE
  9. FAMOTIDINE [Concomitant]

REACTIONS (1)
  - Death [None]
